FAERS Safety Report 5635961-6 (Version None)
Quarter: 2008Q1

REPORT INFORMATION
  Report Type: 
  Country: None (occurrence: None)
  Receive Date: 20080224
  Receipt Date: 20080213
  Transmission Date: 20080703
  Serious: Yes (Hospitalization, Other)
  Sender: FDA-Public Use
  Company Number: PHNR2008AU00481

PATIENT
  Age: 28 Year
  Sex: Female

DRUGS (2)
  1. SYNTOCINON [Suspect]
     Indication: POSTPARTUM HAEMORRHAGE
     Dosage: 10 IU
     Route: 042
     Dates: start: 20071230
  2. SYNTOCINON [Suspect]
     Dosage: 20 IU
     Route: 030

REACTIONS (1)
  - POSTPARTUM HAEMORRHAGE [None]
